FAERS Safety Report 10110894 (Version 2)
Quarter: 2014Q4

REPORT INFORMATION
  Report Type: Other
  Country: US (occurrence: US)
  Receive Date: 20140425
  Receipt Date: 20141031
  Transmission Date: 20150528
  Serious: Yes (Hospitalization, Other)
  Sender: FDA-Public Use
  Company Number: US-GSKPPD-2014GSK008854

PATIENT
  Age: 68 Year
  Sex: Male

DRUGS (6)
  1. TENORMIN [Concomitant]
     Active Substance: ATENOLOL
  2. CRESTOR [Concomitant]
     Active Substance: ROSUVASTATIN CALCIUM
  3. ECOTRIN [Concomitant]
     Active Substance: ASPIRIN
  4. AVANDIA [Suspect]
     Active Substance: ROSIGLITAZONE MALEATE
     Indication: DIABETES MELLITUS
     Dosage: DATE OF AVANDIA USE COULD NOT BE CONFIRMED IN RECORDS REVIEWED.
     Route: 048
  5. PLAVIX [Concomitant]
     Active Substance: CLOPIDOGREL BISULFATE
  6. VASOTEC [Concomitant]
     Active Substance: ENALAPRIL MALEATE

REACTIONS (2)
  - Myocardial infarction [Unknown]
  - Acute coronary syndrome [Recovered/Resolved]

NARRATIVE: CASE EVENT DATE: 20061204
